FAERS Safety Report 4363119-X (Version None)
Quarter: 2004Q2

REPORT INFORMATION
  Report Type: 
  Country: None (occurrence: None)
  Receive Date: 20040518
  Receipt Date: 20040503
  Transmission Date: 20050107
  Serious: Yes (Hospitalization)
  Sender: FDA-Public Use
  Company Number: 2003-06089

PATIENT
  Age: 52 Year
  Sex: Female
  Weight: 48.3 kg

DRUGS (13)
  1. TENOFOVIR DF (TENOFOVIR DISOPROXIL FUMARATE) [Suspect]
     Indication: HIV INFECTION
     Dosage: 300 MG, ONCE A DAY, ORAL
     Route: 048
     Dates: start: 20020529, end: 20030619
  2. TENOFOVIR DF (TENOFOVIR DISOPROXIL FUMARATE) [Suspect]
     Indication: HIV INFECTION
     Dosage: 300 MG, ONCE A DAY, ORAL
     Route: 048
     Dates: start: 20030701, end: 20030916
  3. ZIAGEN [Concomitant]
  4. ATAZANAVIR [Concomitant]
  5. INSULIN [Concomitant]
  6. PANTOLOC (PANTOPRAZOLE SODIUM) [Concomitant]
  7. MEGESTROL [Concomitant]
  8. LACTULOSE [Concomitant]
  9. CLONAZEPAM [Concomitant]
  10. FUROSEMIDE [Concomitant]
  11. MAGNESIUM [Concomitant]
  12. SPIRONOLACTONE [Concomitant]
  13. QUININE SULFATE [Concomitant]

REACTIONS (13)
  - ASTHENIA [None]
  - BLOOD CREATINE INCREASED [None]
  - CIRCULATORY COLLAPSE [None]
  - CONFUSIONAL STATE [None]
  - DEHYDRATION [None]
  - DELUSION [None]
  - DIZZINESS [None]
  - HALLUCINATION [None]
  - HEADACHE [None]
  - HEPATIC ENCEPHALOPATHY [None]
  - NASOPHARYNGITIS [None]
  - RESPIRATORY FAILURE [None]
  - VOMITING [None]
